FAERS Safety Report 25444242 (Version 2)
Quarter: 2025Q4

REPORT INFORMATION
  Report Type: Spontaneous
  Country: US (occurrence: None)
  Receive Date: 20250617
  Receipt Date: 20251027
  Transmission Date: 20260117
  Serious: No
  Sender: UCB
  Company Number: US-UCBSA-2025023994

PATIENT

DRUGS (2)
  1. BIMZELX [Suspect]
     Active Substance: BIMEKIZUMAB-BKZX
     Indication: Psoriasis
     Dosage: 320 MILLIGRAM, EV 8 WEEKS
  2. CLOBETASOL EMOLLIENT [Concomitant]
     Indication: Product used for unknown indication

REACTIONS (3)
  - Psoriasis [Unknown]
  - Product dose omission issue [Unknown]
  - Product storage error [Unknown]
